FAERS Safety Report 20159798 (Version 3)
Quarter: 2022Q1

REPORT INFORMATION
  Report Type: Spontaneous
  Country: JP (occurrence: JP)
  Receive Date: 20211208
  Receipt Date: 20220113
  Transmission Date: 20220424
  Serious: Yes (Other)
  Sender: FDA-Public Use
  Company Number: JP-JNJFOC-20211161671

PATIENT
  Sex: Female

DRUGS (1)
  1. SIMPONI [Suspect]
     Active Substance: GOLIMUMAB
     Indication: Rheumatoid arthritis
     Dosage: SIMPONI AUTOINJECTOR 50.00 MG / 0.50 ML
     Route: 058

REACTIONS (6)
  - Administration site infection [Unknown]
  - Needle issue [Unknown]
  - Needle issue [Unknown]
  - Injury associated with device [Unknown]
  - Underdose [Unknown]
  - Drug delivery system malfunction [Unknown]
